FAERS Safety Report 14916400 (Version 4)
Quarter: 2018Q2

REPORT INFORMATION
  Report Type: Spontaneous
  Country: US (occurrence: US)
  Receive Date: 20180519
  Receipt Date: 20180626
  Transmission Date: 20180711
  Serious: No
  Sender: FDA-Public Use
  Company Number: US-TEVA-2018-US-892573

PATIENT
  Age: 75 Year
  Sex: Male

DRUGS (1)
  1. TESTOSTERONE. [Suspect]
     Active Substance: TESTOSTERONE
     Indication: HORMONE REPLACEMENT THERAPY
     Dosage: TOPICAL SOLUTION ?DOSE STRENGTH:  30/1.5 ?MG/ML
     Route: 061
     Dates: start: 20180510

REACTIONS (3)
  - Drug effect decreased [Unknown]
  - Wrong technique in product usage process [Unknown]
  - Product substitution issue [Unknown]

NARRATIVE: CASE EVENT DATE: 20180510
